FAERS Safety Report 9587299 (Version 1)
Quarter: 2013Q4

REPORT INFORMATION
  Report Type: Spontaneous
  Country: US (occurrence: None)
  Receive Date: 20131003
  Receipt Date: 20131003
  Transmission Date: 20140711
  Serious: Yes (Hospitalization)
  Sender: FDA-Public Use
  Company Number: None

PATIENT
  Age: 32 Year
  Sex: 0
  Weight: 59.1 kg

DRUGS (1)
  1. STRIBILD [Suspect]
     Indication: HIV INFECTION
     Route: 048
     Dates: start: 20130601, end: 20130916

REACTIONS (7)
  - Pyrexia [None]
  - Abdominal pain upper [None]
  - Asthenia [None]
  - Gait disturbance [None]
  - Mood altered [None]
  - Tremor [None]
  - Irritability [None]
